FAERS Safety Report 17482279 (Version 1)
Quarter: 2020Q1

REPORT INFORMATION
  Report Type: Spontaneous
  Country: US (occurrence: US)
  Receive Date: 20200302
  Receipt Date: 20200302
  Transmission Date: 20200409
  Serious: No
  Sender: FDA-Public Use
  Company Number: US-009507513-2002USA010655

PATIENT
  Sex: Female

DRUGS (10)
  1. FOLLISTIM AQ [Suspect]
     Active Substance: FOLLITROPIN
     Indication: INFERTILITY FEMALE
     Dosage: STRENGTH: 900(UNIT NOT PROVIDED), 150 TO 300 UNITS, QD
     Route: 058
     Dates: start: 20200109
  2. LEUPROLIDE [Concomitant]
     Active Substance: LEUPROLIDE
  3. MENOPUR [Concomitant]
     Active Substance: FOLLITROPIN\LUTEINIZING HORMONE
  4. PREGNYL [Concomitant]
     Active Substance: CHORIOGONADOTROPIN ALFA
  5. MINIVELLE [Concomitant]
     Active Substance: ESTRADIOL
  6. AZITHROMYCIN ANHYDROUS. [Concomitant]
     Active Substance: AZITHROMYCIN ANHYDROUS
  7. ASPIRIN. [Concomitant]
     Active Substance: ASPIRIN
  8. CYANOCOBALAMIN. [Concomitant]
     Active Substance: CYANOCOBALAMIN
  9. FOLLISTIM AQ [Suspect]
     Active Substance: FOLLITROPIN
  10. PROGESTERONE. [Concomitant]
     Active Substance: PROGESTERONE

REACTIONS (2)
  - Night sweats [Unknown]
  - Hot flush [Unknown]

NARRATIVE: CASE EVENT DATE: 2020
